FAERS Safety Report 8269841-7 (Version None)
Quarter: 2012Q2

REPORT INFORMATION
  Report Type: 
  Country: None (occurrence: None)
  Receive Date: 20120410
  Receipt Date: 20120402
  Transmission Date: 20120825
  Serious: Yes (Other)
  Sender: FDA-Public Use
  Company Number: US-US-EMD SERONO, INC.-233264J10USA

PATIENT
  Sex: Female
  Weight: 93 kg

DRUGS (6)
  1. LISINOPRIL [Concomitant]
     Indication: HYPERTENSION
  2. DYAZIDE [Concomitant]
     Indication: HYPERTENSION
  3. DETROL LA [Concomitant]
     Indication: NEUROGENIC BLADDER
     Route: 048
     Dates: start: 20070901
  4. REBIF [Suspect]
     Indication: MULTIPLE SCLEROSIS
     Route: 058
     Dates: start: 20061229
  5. MEDIZINE [Concomitant]
     Route: 048
  6. ESTRATEST [Concomitant]
     Route: 048
     Dates: start: 20070901

REACTIONS (5)
  - HYPERLIPIDAEMIA [None]
  - NEPHROPATHY [None]
  - HYPERSOMNIA [None]
  - ASTHENIA [None]
  - MUSCULAR WEAKNESS [None]
